FAERS Safety Report 5303196-2 (Version None)
Quarter: 2007Q2

REPORT INFORMATION
  Report Type: 
  Country: None (occurrence: None)
  Receive Date: 20070420
  Receipt Date: 20070411
  Transmission Date: 20071010
  Serious: Yes (Hospitalization)
  Sender: FDA-Public Use
  Company Number: US-ROCHE-481396

PATIENT
  Age: 74 Year
  Sex: Male
  Weight: 103 kg

DRUGS (13)
  1. CAPECITABINE [Suspect]
     Dosage: ON DAYS 1 TO 8 OF A 2 WEEK CYCLE.
     Route: 048
     Dates: start: 20070109
  2. BEVACIZUMAB [Suspect]
     Dosage: ON DAY ONE OF A 2 WEEK CYCLE.
     Route: 042
     Dates: start: 20070109
  3. OXALIPLATIN [Suspect]
     Dosage: ON DAY ONE OF A 2 WEEK CYCLE.
     Route: 042
     Dates: start: 20070109
  4. METFORMIN HCL [Concomitant]
     Dates: start: 20010615
  5. METOPROLOL SUCCINATE [Concomitant]
     Dates: start: 20010615
  6. SIMVASTATIN [Concomitant]
     Dates: start: 20020615
  7. AMBIEN [Concomitant]
     Dates: start: 20040615
  8. MULTIVITAMIN NOS [Concomitant]
     Dates: start: 19970615
  9. FOSINOPRIL SODIUM [Concomitant]
     Dates: start: 20030615
  10. COMPAZINE [Concomitant]
     Dosage: TDD: UP TO 40 MG.
     Dates: start: 20070109
  11. MILES MAGIC MOUTHWASH SUSPENSION [Concomitant]
     Dates: start: 20070109
  12. ALENE [Concomitant]
     Dosage: 1-2 TABS AS PER NEEDED.
     Dates: start: 20061115
  13. ACTIQ [Concomitant]
     Dates: start: 20061115

REACTIONS (1)
  - DIARRHOEA [None]
